FAERS Safety Report 16817829 (Version 1)
Quarter: 2019Q3

REPORT INFORMATION
  Report Type: Report from Study
  Country: US (occurrence: US)
  Receive Date: 20190917
  Receipt Date: 20190917
  Transmission Date: 20191005
  Serious: Yes (Other)
  Sender: FDA-Public Use
  Company Number: US-JNJFOC-20190826814

PATIENT
  Age: 85 Year
  Sex: Female

DRUGS (2)
  1. IMBRUVICA [Suspect]
     Active Substance: IBRUTINIB
     Indication: CHRONIC LYMPHOCYTIC LEUKAEMIA
     Dosage: 420 MG, QD
     Route: 048
     Dates: start: 20180720
  2. IMBRUVICA [Suspect]
     Active Substance: IBRUTINIB
     Route: 048
     Dates: start: 20190718, end: 20190801

REACTIONS (7)
  - Haemorrhage subcutaneous [Unknown]
  - Lung neoplasm malignant [Unknown]
  - Joint swelling [Unknown]
  - Peripheral swelling [Unknown]
  - Aortic aneurysm [Not Recovered/Not Resolved]
  - Contusion [Unknown]
  - Urine output decreased [Unknown]

NARRATIVE: CASE EVENT DATE: 20190801
